FAERS Safety Report 7179464-9 (Version None)
Quarter: 2010Q4

REPORT INFORMATION
  Report Type: 
  Country: None (occurrence: None)
  Receive Date: 20101221
  Receipt Date: 20101210
  Transmission Date: 20110411
  Serious: Yes (Other)
  Sender: FDA-Public Use
  Company Number: US-GENZYME-THYM-1002176

PATIENT
  Age: 45 Year
  Sex: Female

DRUGS (15)
  1. THYMOGLOBULIN [Suspect]
     Indication: IMMUNOSUPPRESSION
     Dosage: UNK
     Route: 042
     Dates: start: 20060101
  2. PREDNISONE [Concomitant]
     Indication: IMMUNOSUPPRESSANT DRUG THERAPY
     Dosage: UNK
     Dates: start: 20060101
  3. PREDNISONE [Concomitant]
     Dosage: 5 MG, QD
     Route: 048
     Dates: start: 20070101
  4. PREDNISONE [Concomitant]
     Dosage: 15 MG, QD
     Dates: start: 20070101
  5. PREDNISONE [Concomitant]
     Dosage: 10 MG, QD
  6. TACROLIMUS [Concomitant]
     Indication: IMMUNOSUPPRESSANT DRUG THERAPY
     Dosage: UNK
     Dates: start: 20060101
  7. TACROLIMUS [Concomitant]
     Dosage: 5 MG, BID
     Dates: start: 20070101
  8. TACROLIMUS [Concomitant]
     Dosage: 2 MG, QD
     Dates: start: 20070101
  9. MYCOPHENOLIC ACID [Concomitant]
     Indication: IMMUNOSUPPRESSANT DRUG THERAPY
     Dosage: UNK
     Dates: start: 20060101
  10. MYCOPHENOLIC ACID [Concomitant]
     Dosage: 720 MG, BID
     Dates: start: 20070101
  11. SULFAMETHOXAZOLE AND TRIMETHOPRIM [Concomitant]
     Indication: ANTIBIOTIC PROPHYLAXIS
     Dosage: UNK
     Dates: start: 20060101
  12. SULFAMETHOXAZOLE AND TRIMETHOPRIM [Concomitant]
     Dosage: UNK UNK, QD
     Dates: start: 20070101
  13. VALGANCICLOVIR HCL [Concomitant]
     Indication: ANTIVIRAL PROPHYLAXIS
     Dosage: UNK
     Dates: start: 20060101
  14. VALGANCICLOVIR HCL [Concomitant]
     Dosage: 450 MG, QD
     Dates: start: 20070101
  15. CLONIDINE [Concomitant]
     Indication: PRODUCT USED FOR UNKNOWN INDICATION
     Dosage: 0.2 MG, BID
     Dates: start: 20070101

REACTIONS (3)
  - DERMOID CYST [None]
  - DIABETES MELLITUS [None]
  - NEPHRITIS [None]
